FAERS Safety Report 20082238 (Version 1)
Quarter: 2021Q4

REPORT INFORMATION
  Report Type: Spontaneous
  Country: US (occurrence: None)
  Receive Date: 20211117
  Receipt Date: 20211117
  Transmission Date: 20220304
  Serious: Yes (Other)
  Sender: FDA-Public Use
  Company Number: None

PATIENT
  Age: 53 Year
  Sex: Female
  Weight: 89.1 kg

DRUGS (9)
  1. MESALAMINE [Suspect]
     Active Substance: MESALAMINE
     Indication: Crohn^s disease
     Dosage: OTHER QUANTITY : 4 TABLET(S);?FREQUENCY : DAILY;?
     Route: 048
  2. MESALAMINE [Concomitant]
     Active Substance: MESALAMINE
  3. LISINOPRIL [Concomitant]
     Active Substance: LISINOPRIL
  4. METOPROLOL [Suspect]
     Active Substance: METOPROLOL
  5. LAMOTRIGINE [Concomitant]
     Active Substance: LAMOTRIGINE
  6. FISH OIL [Concomitant]
  7. VITAMINS [Concomitant]
     Active Substance: VITAMINS
  8. EMERGEN-C [Concomitant]
     Active Substance: VITAMINS
  9. VITAMIN D [Concomitant]
     Active Substance: VITAMIN D NOS

REACTIONS (1)
  - Product prescribing issue [None]

NARRATIVE: CASE EVENT DATE: 20211117
